FAERS Safety Report 17432971 (Version 1)
Quarter: 2020Q1

REPORT INFORMATION
  Report Type: Spontaneous
  Country: IE (occurrence: IE)
  Receive Date: 20200219
  Receipt Date: 20200219
  Transmission Date: 20200409
  Serious: Yes (Death)
  Sender: FDA-Public Use
  Company Number: IE-TEVA-2020-IE-1187719

PATIENT
  Age: 46 Year
  Sex: Female

DRUGS (1)
  1. SERENACE 0.5 MILLIGRAM [Suspect]
     Active Substance: HALOPERIDOL
     Indication: PSYCHOTIC DISORDER
     Dosage: PATIENT TOOK 5 TABLETS DAILY
     Route: 048
     Dates: start: 20171124, end: 20191212

REACTIONS (1)
  - Death [Fatal]
